FAERS Safety Report 22123167 (Version 2)
Quarter: 2024Q1

REPORT INFORMATION
  Report Type: Other
  Country: DE (occurrence: DE)
  Receive Date: 20230322
  Receipt Date: 20240207
  Transmission Date: 20240409
  Serious: Yes (Other)
  Sender: FDA-Public Use
  Company Number: DE-TEVA-2023-DE-2862601

PATIENT
  Age: 72 Year
  Sex: Male

DRUGS (6)
  1. UNSPECIFIED INGREDIENT [Suspect]
     Active Substance: UNSPECIFIED INGREDIENT
     Indication: Withdrawal syndrome
     Dosage: 11.25 MILLIGRAM, Q 3 MONTH
     Dates: start: 202103
  2. ELIQUIS [Concomitant]
     Active Substance: APIXABAN
     Indication: Atrial fibrillation
     Dosage: 10 MILLIGRAM
     Dates: start: 2011
  3. EZETIMIBE [Concomitant]
     Active Substance: EZETIMIBE
     Indication: Lipids increased
     Dosage: 10 MILLIGRAM, QD
     Dates: start: 2016
  4. ROSUVASTATIN [Concomitant]
     Active Substance: ROSUVASTATIN
     Indication: Product used for unknown indication
     Dosage: 5 MILLIGRAM, QD
     Dates: start: 2016
  5. CANDESARTAN [Concomitant]
     Active Substance: CANDESARTAN
     Indication: Coronary artery disease
     Dosage: 4 MILLIGRAM, QD
     Dates: start: 2016
  6. NEBIVOLOL [Concomitant]
     Active Substance: NEBIVOLOL
     Indication: Coronary artery disease
     Dosage: 3.75 MILLIGRAM, QD
     Dates: start: 2011

REACTIONS (5)
  - Arrhythmia [Recovering/Resolving]
  - Extrasystoles [Recovered/Resolved]
  - Off label use [Unknown]
  - Respiratory disorder [Not Recovered/Not Resolved]
  - Asthenia [Not Recovered/Not Resolved]

NARRATIVE: CASE EVENT DATE: 20210601
